FAERS Safety Report 11144052 (Version 2)
Quarter: 2015Q4

REPORT INFORMATION
  Report Type: Spontaneous
  Country: US (occurrence: US)
  Receive Date: 20150528
  Receipt Date: 20151030
  Transmission Date: 20160304
  Serious: Yes (Hospitalization)
  Sender: FDA-Public Use
  Company Number: US-BAYER-2015-277791

PATIENT
  Age: 38 Year
  Sex: Female
  Weight: 87.75 kg

DRUGS (8)
  1. YAZ [Suspect]
     Active Substance: DROSPIRENONE\ETHINYL ESTRADIOL
     Dosage: UNK
     Dates: start: 20021021, end: 2005
  2. GIANVI [Suspect]
     Active Substance: DROSPIRENONE\ETHINYL ESTRADIOL
     Dosage: UNK
     Dates: start: 20021021, end: 2005
  3. TORADOL [Concomitant]
     Active Substance: KETOROLAC TROMETHAMINE
  4. AZITHROMYCIN [Concomitant]
     Active Substance: AZITHROMYCIN ANHYDROUS
     Dosage: 500 MG, UNK
  5. YASMIN [Suspect]
     Active Substance: DROSPIRENONE\ETHINYL ESTRADIOL
     Dosage: UNK
     Dates: start: 20021021, end: 2005
  6. ZOLOFT [Concomitant]
     Active Substance: SERTRALINE HYDROCHLORIDE
     Indication: DEPRESSION
  7. GUAIFENEX [Concomitant]
     Active Substance: GUAIFENESIN\PHENYLEPHRINE\PHENYLPROPANOLAMINE
     Dosage: 600/120
  8. OCELLA [Suspect]
     Active Substance: DROSPIRENONE\ETHINYL ESTRADIOL
     Dosage: UNK
     Dates: start: 20021021, end: 2005

REACTIONS (4)
  - Injury [None]
  - Pain [None]
  - Pulmonary embolism [None]
  - Emotional distress [None]

NARRATIVE: CASE EVENT DATE: 20060219
